FAERS Safety Report 6460767-8 (Version None)
Quarter: 2009Q4

REPORT INFORMATION
  Report Type: 
  Country: None (occurrence: None)
  Receive Date: 20091130
  Receipt Date: 20091123
  Transmission Date: 20100525
  Serious: Yes (Other)
  Sender: FDA-Public Use
  Company Number: US-PFIZER INC-2009185114

PATIENT
  Sex: Female
  Weight: 64 kg

DRUGS (8)
  1. PROVERA [Suspect]
     Indication: HORMONE REPLACEMENT THERAPY
     Dosage: 2.5 MG, UNK
     Route: 048
     Dates: start: 19810101, end: 19950101
  2. PROVERA [Suspect]
     Indication: MENOPAUSAL SYMPTOMS
  3. PREMARIN [Suspect]
     Indication: HORMONE REPLACEMENT THERAPY
     Dosage: 0.625 MG, UNK
     Dates: start: 19760101, end: 19950101
  4. PREMARIN [Suspect]
     Indication: MENOPAUSAL SYMPTOMS
  5. LEVOTHYROXINE [Concomitant]
     Indication: HYPOTHYROIDISM
     Dosage: 175 MG, 1X/DAY
     Dates: start: 19800101
  6. LABETALOL [Concomitant]
     Indication: ARRHYTHMIA
     Dosage: 100 MG, 1X/DAY
     Dates: start: 19900101
  7. HYDROCHLOROTHIAZIDE [Concomitant]
     Indication: BLOOD PRESSURE
     Dosage: 25 MG, 1X/DAY
     Dates: start: 19880101, end: 20070101
  8. PROPAFENONE [Concomitant]
     Indication: ARRHYTHMIA
     Dosage: 225 MG, 2X/DAY
     Dates: start: 19900101

REACTIONS (1)
  - BREAST CANCER FEMALE [None]
